FAERS Safety Report 9364154 (Version 1)
Quarter: 2013Q2

REPORT INFORMATION
  Report Type: Spontaneous
  Country: US (occurrence: US)
  Receive Date: 20130624
  Receipt Date: 20130624
  Transmission Date: 20140414
  Serious: No
  Sender: FDA-Public Use
  Company Number: US-MYLANLABS-2013S1009565

PATIENT
  Age: 47 Year
  Sex: Female

DRUGS (1)
  1. CYCLOBENZAPRINE HYDROCHLORIDE [Suspect]
     Indication: MUSCLE SPASMS
     Route: 048
     Dates: start: 20130429, end: 20130430

REACTIONS (2)
  - Rash generalised [Not Recovered/Not Resolved]
  - Reaction to drug excipients [Not Recovered/Not Resolved]
